FAERS Safety Report 9085926 (Version 2)
Quarter: 2013Q1

REPORT INFORMATION
  Report Type: Spontaneous
  Country: ES (occurrence: ES)
  Receive Date: 20130131
  Receipt Date: 20130326
  Transmission Date: 20140127
  Serious: Yes (Death, Hospitalization)
  Sender: FDA-Public Use
  Company Number: ES-ELI_LILLY_AND_COMPANY-ES201301007793

PATIENT
  Sex: Female

DRUGS (1)
  1. FORSTEO [Suspect]
     Indication: OSTEOPOROSIS
     Dosage: UNK, UNKNOWN
     Route: 058
     Dates: start: 20120208, end: 201208

REACTIONS (4)
  - Respiratory failure [Fatal]
  - Respiratory failure [Unknown]
  - Pain [Unknown]
  - Tooth disorder [Unknown]
